FAERS Safety Report 8414835-1 (Version None)
Quarter: 2012Q2

REPORT INFORMATION
  Report Type: 
  Country: None (occurrence: None)
  Receive Date: 20120606
  Receipt Date: 20120529
  Transmission Date: 20120825
  Serious: No
  Sender: FDA-Public Use
  Company Number: US-BIOGENIDEC-2012BI018758

PATIENT
  Age: 48 Year
  Sex: Female

DRUGS (1)
  1. AVONEX [Suspect]
     Indication: MULTIPLE SCLEROSIS
     Route: 030
     Dates: start: 20120209

REACTIONS (9)
  - INFLUENZA LIKE ILLNESS [None]
  - DEPRESSED MOOD [None]
  - BURNING SENSATION [None]
  - EUPHORIC MOOD [None]
  - ASTHENIA [None]
  - PARAESTHESIA [None]
  - ANXIETY [None]
  - DYSPNOEA [None]
  - NAUSEA [None]
